FAERS Safety Report 19879825 (Version 1)
Quarter: 2021Q3

REPORT INFORMATION
  Report Type: Spontaneous
  Country: GB (occurrence: GB)
  Receive Date: 20210924
  Receipt Date: 20210924
  Transmission Date: 20211014
  Serious: Yes (Life-Threatening, Other)
  Sender: FDA-Public Use
  Company Number: GB-MYLANLABS-2021M1064349

PATIENT
  Age: 68 Year
  Sex: Female
  Weight: 45.58 kg

DRUGS (1)
  1. CITALOPRAM [Suspect]
     Active Substance: CITALOPRAM HYDROBROMIDE
     Indication: ANXIETY
     Dosage: 10 MILLIGRAM, QD (1 10 MG TABLET EVERY DAY)
     Route: 048
     Dates: start: 20210726

REACTIONS (2)
  - Tongue disorder [Not Recovered/Not Resolved]
  - Tongue dry [Not Recovered/Not Resolved]

NARRATIVE: CASE EVENT DATE: 20210901
